FAERS Safety Report 4347828-4 (Version None)
Quarter: 2004Q1

REPORT INFORMATION
  Report Type: 
  Country: None (occurrence: None)
  Receive Date: 20040325
  Receipt Date: 20040120
  Transmission Date: 20041129
  Serious: No
  Sender: FDA-Public Use
  Company Number: USA040157050

PATIENT
  Age: 49 Year
  Sex: Male

DRUGS (3)
  1. FORTEO [Suspect]
     Dates: start: 20040101
  2. ENBREL [Concomitant]
  3. COUMADIN [Concomitant]

REACTIONS (1)
  - MUSCULOSKELETAL STIFFNESS [None]
